FAERS Safety Report 4277290-1 (Version None)
Quarter: 2004Q1

REPORT INFORMATION
  Report Type: 
  Country: None (occurrence: None)
  Receive Date: 20040116
  Receipt Date: 20040105
  Transmission Date: 20041129
  Serious: Yes (Other)
  Sender: FDA-Public Use
  Company Number: A0045492A

PATIENT
  Age: 44 Year
  Sex: Male

DRUGS (4)
  1. MEPRON [Suspect]
     Dosage: 210 ML/ ORAL
     Route: 048
  2. DAPSONE [Suspect]
  3. ZIDOVUDINE [Concomitant]
  4. LAMIVUDINE [Concomitant]

REACTIONS (3)
  - ACQUIRED METHAEMOGLOBINAEMIA [None]
  - INTENTIONAL OVERDOSE [None]
  - SUICIDE ATTEMPT [None]
